FAERS Safety Report 9968882 (Version 1)
Quarter: 2014Q1

REPORT INFORMATION
  Report Type: Report from Study
  Country: US (occurrence: US)
  Receive Date: 20140306
  Receipt Date: 20140306
  Transmission Date: 20141002
  Serious: No
  Sender: FDA-Public Use
  Company Number: US-ABBVIE-13P-163-1143441-00

PATIENT
  Age: 48 Year
  Sex: Female
  Weight: 99.88 kg

DRUGS (2)
  1. HUMIRA [Suspect]
     Indication: PSORIASIS
     Dates: start: 201307, end: 201307
  2. HUMIRA [Suspect]
     Dates: start: 201307

REACTIONS (3)
  - Cough [Recovering/Resolving]
  - Pneumonia [Recovering/Resolving]
  - Back pain [Recovering/Resolving]
